FAERS Safety Report 14642879 (Version 3)
Quarter: 2019Q2

REPORT INFORMATION
  Report Type: Spontaneous
  Country: DE (occurrence: DE)
  Receive Date: 20180315
  Receipt Date: 20190412
  Transmission Date: 20190711
  Serious: Yes (Hospitalization, Other)
  Sender: FDA-Public Use
  Company Number: DE-ASCEND THERAPEUTICS-2043853

PATIENT
  Age: 67 Year
  Sex: Female

DRUGS (5)
  1. LEGALON (SILYBUM MARIANUM) [Concomitant]
     Route: 065
  2. ESTROGEL [Suspect]
     Active Substance: ESTRADIOL
     Indication: MENOPAUSAL SYMPTOMS
     Route: 062
     Dates: start: 200701, end: 20171229
  3. UTROGESTAN [Suspect]
     Active Substance: PROGESTERONE
     Route: 065
     Dates: start: 200701, end: 20171229
  4. HARVONI [Concomitant]
     Active Substance: LEDIPASVIR\SOFOSBUVIR
     Dates: start: 201808, end: 201811
  5. BISOPROLOL (BISOPROLOL) [Concomitant]
     Active Substance: BISOPROLOL
     Route: 048

REACTIONS (8)
  - Gait disturbance [Not Recovered/Not Resolved]
  - Hepatocellular carcinoma [Recovered/Resolved with Sequelae]
  - Urinary incontinence [Not Recovered/Not Resolved]
  - Endometrial thickening [Recovered/Resolved]
  - Muscular weakness [Not Recovered/Not Resolved]
  - Contraindicated product administered [None]
  - Memory impairment [Not Recovered/Not Resolved]
  - Disturbance in attention [Not Recovered/Not Resolved]

NARRATIVE: CASE EVENT DATE: 2007
